FAERS Safety Report 20103461 (Version 1)
Quarter: 2021Q4

REPORT INFORMATION
  Report Type: Spontaneous
  Country: US (occurrence: None)
  Receive Date: 20211123
  Receipt Date: 20211123
  Transmission Date: 20220303
  Serious: Yes (Other)
  Sender: FDA-Public Use
  Company Number: None

PATIENT
  Age: 73 Year
  Sex: Female
  Weight: 47.63 kg

DRUGS (3)
  1. PROLIA [Suspect]
     Active Substance: DENOSUMAB
  2. CARVEDILOL [Concomitant]
     Active Substance: CARVEDILOL
  3. CLONIDINE [Concomitant]
     Active Substance: CLONIDINE

REACTIONS (4)
  - Eye haemorrhage [None]
  - Urinary tract infection [None]
  - Insomnia [None]
  - Arthralgia [None]

NARRATIVE: CASE EVENT DATE: 20211014
